FAERS Safety Report 14351629 (Version 1)
Quarter: 2018Q1

REPORT INFORMATION
  Report Type: Spontaneous
  Country: US (occurrence: US)
  Receive Date: 20180103
  Receipt Date: 20180103
  Transmission Date: 20180509
  Serious: No
  Sender: FDA-Public Use
  Company Number: None

PATIENT
  Age: 91 Year
  Sex: Male

DRUGS (10)
  1. VITAMIN D [Concomitant]
     Active Substance: CHOLECALCIFEROL
  2. PERCOCET [Concomitant]
     Active Substance: ACETAMINOPHEN\OXYCODONE HYDROCHLORIDE
  3. MULTI-VITAMINS [Concomitant]
  4. TAMSULOSIN [Concomitant]
     Active Substance: TAMSULOSIN
  5. ZYTIGA [Suspect]
     Active Substance: ABIRATERONE ACETATE
     Indication: MALIGNANT MELANOMA
     Route: 048
     Dates: start: 20171016
  6. IBUPROFEN. [Concomitant]
     Active Substance: IBUPROFEN
  7. ZOFRAN [Concomitant]
     Active Substance: ONDANSETRON HYDROCHLORIDE
  8. ZOMATE [Concomitant]
  9. FIRMAGON [Concomitant]
     Active Substance: DEGARELIX ACETATE
  10. PRESNISONE [Concomitant]

REACTIONS (5)
  - Abdominal pain upper [None]
  - Diarrhoea [None]
  - Joint swelling [None]
  - Drug ineffective [None]
  - Cystitis [None]

NARRATIVE: CASE EVENT DATE: 20171226
